FAERS Safety Report 7978264-7 (Version None)
Quarter: 2011Q4

REPORT INFORMATION
  Report Type: 
  Country: None (occurrence: None)
  Receive Date: 20111129
  Receipt Date: 20110712
  Transmission Date: 20120403
  Serious: No
  Sender: FDA-Public Use
  Company Number: PHHY2011US59404

PATIENT
  Age: 21 Year
  Sex: Female

DRUGS (6)
  1. ABILIFY [Concomitant]
  2. AFINITOR [Suspect]
     Indication: TUBEROUS SCLEROSIS
     Dosage: 5 MG, DAILY, ORAL
     Route: 048
     Dates: start: 20110603, end: 20110627
  3. VIMPAT [Concomitant]
  4. PROZAC [Concomitant]
  5. SABRIL [Concomitant]
  6. LEVOTHYROXINE SODIUM [Concomitant]

REACTIONS (6)
  - PYREXIA [None]
  - STOMATITIS [None]
  - FEELING ABNORMAL [None]
  - NAUSEA [None]
  - DECREASED APPETITE [None]
  - ORAL PAIN [None]
